FAERS Safety Report 5214012-1 (Version None)
Quarter: 2007Q1

REPORT INFORMATION
  Report Type: 
  Country: None (occurrence: None)
  Receive Date: 20070122
  Receipt Date: 20070112
  Transmission Date: 20070707
  Serious: Yes (Life-Threatening, Hospitalization)
  Sender: FDA-Public Use
  Company Number: DE-JNJFOC-20070102475

PATIENT
  Sex: Male
  Weight: 86 kg

DRUGS (4)
  1. RISPERDAL [Suspect]
     Indication: SCHIZOPHRENIA
     Route: 048
     Dates: start: 20061223, end: 20070110
  2. ATOSIL [Concomitant]
     Indication: RESTLESSNESS
     Route: 048
  3. LORMETAZEPAM [Concomitant]
     Indication: SLEEP DISORDER
     Route: 048
  4. NORVASC [Concomitant]
     Indication: HYPERTENSION
     Route: 048

REACTIONS (1)
  - ILEUS PARALYTIC [None]
